FAERS Safety Report 24129167 (Version 1)
Quarter: 2024Q3

REPORT INFORMATION
  Report Type: Report from Study
  Country: US (occurrence: US)
  Receive Date: 20240723
  Receipt Date: 20240723
  Transmission Date: 20241016
  Serious: Yes (Hospitalization, Other)
  Sender: EISAI
  Company Number: US-Eisai-EC-2024-168830

PATIENT
  Age: 61 Year
  Sex: Male

DRUGS (3)
  1. LENVIMA [Suspect]
     Active Substance: LENVATINIB
     Indication: Malignant melanoma
     Route: 048
     Dates: start: 20240624
  2. BRAFTOVI [Concomitant]
     Active Substance: ENCORAFENIB
     Dosage: DOSE AND FREQUENCY UNKNOWN
  3. MEKTOVI [Concomitant]
     Active Substance: BINIMETINIB
     Dosage: DOSE AND FREQUENCY UNKNOWN

REACTIONS (8)
  - Malaise [Unknown]
  - Asthenia [Unknown]
  - Decreased appetite [Unknown]
  - Ascites [Recovered/Resolved]
  - Atrial fibrillation [Unknown]
  - Hypotension [Recovered/Resolved]
  - Blood pressure increased [Unknown]
  - Malignant neoplasm progression [Not Recovered/Not Resolved]

NARRATIVE: CASE EVENT DATE: 20240624
